FAERS Safety Report 4682924-3 (Version None)
Quarter: 2005Q2

REPORT INFORMATION
  Report Type: 
  Country: None (occurrence: None)
  Receive Date: 20050602
  Receipt Date: 20050206
  Transmission Date: 20051028
  Serious: No
  Sender: FDA-Public Use
  Company Number: US_0502112525

PATIENT
  Age: 50 Year
  Sex: Female

DRUGS (2)
  1. CYMBALTA [Suspect]
     Indication: NEUROPATHY
     Dosage: 30 MG DAY
  2. CYMBALTA [Suspect]
     Indication: SJOGREN'S SYNDROME
     Dosage: 30 MG DAY

REACTIONS (1)
  - HANGOVER [None]
